FAERS Safety Report 20002501 (Version 1)
Quarter: 2021Q4

REPORT INFORMATION
  Report Type: Spontaneous
  Country: ES (occurrence: ES)
  Receive Date: 20211027
  Receipt Date: 20211027
  Transmission Date: 20220303
  Serious: Yes (Other)
  Sender: FDA-Public Use
  Company Number: None

PATIENT
  Age: 54 Year
  Sex: Male

DRUGS (4)
  1. OXALIPLATIN [Suspect]
     Active Substance: OXALIPLATIN
     Indication: Adenocarcinoma of colon
     Dosage: FIRST CYCLE, 230 MG
     Route: 042
     Dates: start: 20201204, end: 20201204
  2. OXALIPLATIN [Suspect]
     Active Substance: OXALIPLATIN
     Dosage: SECOND CYCLE, 230 MG
     Route: 042
     Dates: start: 20201228, end: 20201228
  3. CAPECITABINE [Concomitant]
     Active Substance: CAPECITABINE
     Indication: Adenocarcinoma of colon
     Dosage: FIRST CYCLE, 120 TABLETS, 1800 MG
     Route: 048
     Dates: start: 20201204, end: 20201218
  4. CAPECITABINE [Concomitant]
     Active Substance: CAPECITABINE
     Dosage: SECOND CYCLE, 1800 MG
     Route: 048
     Dates: start: 20201228, end: 20210111

REACTIONS (1)
  - Tunnel vision [Recovered/Resolved]

NARRATIVE: CASE EVENT DATE: 20201228
